FAERS Safety Report 6918689-1 (Version None)
Quarter: 2010Q3

REPORT INFORMATION
  Report Type: 
  Country: None (occurrence: None)
  Receive Date: 20100811
  Receipt Date: 20100805
  Transmission Date: 20110219
  Serious: Yes (Disabling)
  Sender: FDA-Public Use
  Company Number: US-BAYER-201018794BCC

PATIENT
  Age: 62 Year
  Sex: Male
  Weight: 86 kg

DRUGS (7)
  1. ALEVE (CAPLET) [Suspect]
     Indication: BACK PAIN
     Dosage: TOTAL DAILY DOSE: 220 MG  UNIT DOSE: 220 MG
     Route: 048
     Dates: start: 20100101, end: 20100101
  2. SIMVASTATIN [Concomitant]
     Route: 065
  3. AMLODIPINE BESYLATE AND BENAZEPRIL HCL [Concomitant]
     Route: 065
  4. VITAMIN D [Concomitant]
     Route: 065
  5. UNKNOWN MULTIVITAMIN [Concomitant]
     Route: 065
  6. IBUPROFEN [Concomitant]
     Route: 065
  7. VICODIN [Concomitant]
     Route: 065

REACTIONS (3)
  - BACK PAIN [None]
  - DYSSTASIA [None]
  - VOMITING [None]
